FAERS Safety Report 4492814-7 (Version None)
Quarter: 2004Q4

REPORT INFORMATION
  Report Type: 
  Country: None (occurrence: None)
  Receive Date: 20041104
  Receipt Date: 20041026
  Transmission Date: 20050328
  Serious: Yes (Other)
  Sender: FDA-Public Use
  Company Number: PHFR2004GB03996

PATIENT
  Age: 41 Year
  Sex: Male

DRUGS (5)
  1. TEGRETOL [Suspect]
     Indication: WERNICKE'S ENCEPHALOPATHY
     Dosage: 400 MG, BID
     Route: 048
  2. PROPRANOLOL [Concomitant]
     Dosage: 10 MG, TID
     Route: 065
  3. LANSOPRAZOLE [Concomitant]
     Dosage: 30 MG, QD
     Route: 065
  4. VITAMIN B COMPLEX CAP [Concomitant]
     Route: 065
  5. ALCOHOL [Suspect]

REACTIONS (2)
  - DRUG LEVEL INCREASED [None]
  - POISONING [None]
